FAERS Safety Report 6503141-8 (Version None)
Quarter: 2009Q4

REPORT INFORMATION
  Report Type: 
  Country: None (occurrence: None)
  Receive Date: 20091217
  Receipt Date: 20091202
  Transmission Date: 20100525
  Serious: Yes (Disabling, Other)
  Sender: FDA-Public Use
  Company Number: US-TYCO HEALTHCARE/MALLINCKRODT-T200800548

PATIENT

DRUGS (17)
  1. OPTIMARK [Suspect]
     Indication: NUCLEAR MAGNETIC RESONANCE IMAGING
     Route: 042
     Dates: start: 20060727, end: 20060727
  2. OPTIMARK [Suspect]
     Route: 042
     Dates: start: 20060731, end: 20060731
  3. MAGNEVIST [Suspect]
     Indication: NUCLEAR MAGNETIC RESONANCE IMAGING
     Dates: start: 20050527, end: 20050527
  4. HUMULIN N [Concomitant]
     Indication: DIABETES MELLITUS
     Dosage: 15 IU, QID (INSULIN N AND R)
     Dates: start: 19900101
  5. ENBREL [Concomitant]
     Indication: ARTHRITIS
     Dosage: 500 MG, SHOT ONE TIME WEEKLY
     Dates: start: 20051001
  6. BENICAR [Concomitant]
     Indication: BLOOD PRESSURE
     Dosage: 40 MG, QD
  7. SIMVASTATIN [Concomitant]
     Indication: BLOOD CHOLESTEROL
     Dosage: 80 MG, QD
  8. FOLIC ACID [Concomitant]
     Indication: ANAEMIA
     Dosage: 1 MG, BID
  9. BUMETANIDE [Concomitant]
     Indication: DIURETIC THERAPY
     Dosage: 2 MG, UNK
  10. HYDROCODONE [Concomitant]
     Indication: PAIN
     Dosage: 7.5/500
     Dates: start: 20060101
  11. CLONIDINE [Concomitant]
     Indication: HYPERTENSION
     Dosage: .3 MG, ONE PATCH WEEKLY
  12. NORVASC [Concomitant]
     Indication: HYPERTENSION
     Dosage: 5 MG, QD
  13. LEVOTHYROXINE SODIUM [Concomitant]
     Indication: THYROID DISORDER
     Dosage: 25 UG, QD
  14. TRAVATAN [Concomitant]
     Indication: GLAUCOMA
     Dosage: .004 %, ONE DROP IN EACH EYE DAILY
  15. ARANESP [Concomitant]
     Indication: ANAEMIA
     Dosage: 100 MG, ONE SHOT MONTHLY
  16. ZYRTEC [Concomitant]
     Indication: HYPERSENSITIVITY
     Dosage: 10 MG, PRN
  17. TEMAZEPAM [Concomitant]
     Indication: SLEEP DISORDER
     Dosage: (2) 15 MG AT BEDTIME

REACTIONS (3)
  - HYPOTHYROIDISM [None]
  - NEPHROGENIC SYSTEMIC FIBROSIS [None]
  - OFF LABEL USE [None]
